FAERS Safety Report 23241709 (Version 1)
Quarter: 2023Q4

REPORT INFORMATION
  Report Type: Spontaneous
  Country: US (occurrence: None)
  Receive Date: 20231129
  Receipt Date: 20231129
  Transmission Date: 20240109
  Serious: Yes (Hospitalization)
  Sender: FDA-Public Use
  Company Number: None

PATIENT
  Age: 27 Year
  Sex: Male
  Weight: 106.6 kg

DRUGS (4)
  1. FLUOROURACIL [Suspect]
     Active Substance: FLUOROURACIL
     Dates: end: 20231031
  2. CAMPTOSAR [Suspect]
     Active Substance: IRINOTECAN HYDROCHLORIDE
     Dates: end: 20231031
  3. LEUCOVORIN CALCIUM [Suspect]
     Active Substance: LEUCOVORIN CALCIUM
     Dates: end: 20231031
  4. ELOXATIN [Suspect]
     Active Substance: OXALIPLATIN
     Dates: end: 20231031

REACTIONS (10)
  - Dyspnoea [None]
  - Pleuritic pain [None]
  - Productive cough [None]
  - Haemoptysis [None]
  - Pulmonary embolism [None]
  - Tachycardia [None]
  - Cardiac myxoma [None]
  - Pyrexia [None]
  - Neutropenia [None]
  - Iron deficiency anaemia [None]

NARRATIVE: CASE EVENT DATE: 20231110
